FAERS Safety Report 19579203 (Version 1)
Quarter: 2021Q3

REPORT INFORMATION
  Report Type: Report from Study
  Country: CA (occurrence: CA)
  Receive Date: 20210719
  Receipt Date: 20210719
  Transmission Date: 20211014
  Serious: Yes (Other)
  Sender: FDA-Public Use
  Company Number: CA-OTSUKA-2021_000501

PATIENT
  Age: 85 Year
  Sex: Female

DRUGS (2)
  1. CEDAZURIDINE AND DECITABINE [Suspect]
     Active Substance: CEDAZURIDINE\DECITABINE
     Indication: MYELODYSPLASTIC SYNDROME
     Dosage: (35 MG DECITABINE AND 100 MG CEDAZURIDINE)
     Route: 065
     Dates: start: 20201201
  2. CEDAZURIDINE AND DECITABINE [Suspect]
     Active Substance: CEDAZURIDINE\DECITABINE
     Dosage: (35 MG DECITABINE AND 100 MG CEDAZURIDINE), THREE DAYS REGIMEN
     Route: 065

REACTIONS (5)
  - Product use issue [Unknown]
  - Pneumonia [Unknown]
  - Myocardial infarction [Unknown]
  - Neoplasm malignant [Unknown]
  - Asthenia [Unknown]

NARRATIVE: CASE EVENT DATE: 202012
